FAERS Safety Report 4989681-1 (Version None)
Quarter: 2006Q2

REPORT INFORMATION
  Report Type: 
  Country: None (occurrence: None)
  Receive Date: 20060426
  Receipt Date: 20060405
  Transmission Date: 20061013
  Serious: Yes (Hospitalization, Disabling, Other)
  Sender: FDA-Public Use
  Company Number: US97091981A

PATIENT
  Age: 49 Year
  Sex: Female
  Weight: 181.4 kg

DRUGS (14)
  1. HUMALOG [Suspect]
     Indication: DIABETES MELLITUS
     Dosage: SEE IMAGE
     Dates: start: 19890101, end: 19980101
  2. HUMALOG [Suspect]
     Indication: DIABETES MELLITUS
     Dosage: SEE IMAGE
     Dates: end: 20050520
  3. HUMALOG [Suspect]
     Indication: DIABETES MELLITUS
     Dosage: SEE IMAGE
     Dates: end: 20050520
  4. HUMALOG [Suspect]
     Indication: DIABETES MELLITUS
     Dosage: SEE IMAGE
     Dates: start: 20000101
  5. HUMALOG MIX 75/25 [Suspect]
     Indication: DIABETES MELLITUS
     Dosage: 110 U, DAILY (1/D), SUBCUTANEOUS
     Route: 058
     Dates: start: 20000101
  6. HUMALOG MIX 75/25 PEN (HUMALOG MIX 25L / 5NPL PEN) PEN, DISPOSABLE [Concomitant]
  7. ELAVIL [Concomitant]
  8. ASPIRIN [Concomitant]
  9. TRENTAL [Concomitant]
  10. NIACIN [Concomitant]
  11. PLAVIX [Concomitant]
  12. GLUCOPHAGE [Concomitant]
  13. ACTOS /CAN/ (PIOGLITAZONE HYDROCHLORIDE) [Concomitant]
  14. LANTUS [Concomitant]

REACTIONS (14)
  - BALANCE DISORDER [None]
  - BLOOD GLUCOSE INCREASED [None]
  - CARPAL TUNNEL SYNDROME [None]
  - DIABETES MELLITUS INADEQUATE CONTROL [None]
  - HYPOGLYCAEMIA [None]
  - INJECTION SITE HAEMORRHAGE [None]
  - OSTEOMYELITIS [None]
  - PHARMACEUTICAL PRODUCT COMPLAINT [None]
  - RENAL FAILURE CHRONIC [None]
  - STOMACH DISCOMFORT [None]
  - STRESS [None]
  - WEIGHT DECREASED [None]
  - WEIGHT INCREASED [None]
  - WHEELCHAIR USER [None]
